FAERS Safety Report 10839002 (Version 1)
Quarter: 2015Q1

REPORT INFORMATION
  Report Type: Spontaneous
  Country: FR (occurrence: None)
  Receive Date: 20150218
  Receipt Date: 20150218
  Transmission Date: 20150721
  Serious: Yes (Hospitalization)
  Sender: FDA-Public Use
  Company Number: 8009167

PATIENT
  Age: 25 Year
  Sex: Female

DRUGS (2)
  1. LEVOTHYROX 175 (LEVOTHYROXINE SODIUM) (175 MILLIGRAM, TABLET) (LEVOTHYROXINE SODIUM ) [Suspect]
     Active Substance: LEVOTHYROXINE
     Indication: PRODUCT USED FOR UNKNOWN INDICATION
     Dosage: 20 TABLETS AT 5:30 P.M. ORAL
     Route: 048
     Dates: start: 20150121, end: 20150121
  2. IBUPROFEN. [Suspect]
     Active Substance: IBUPROFEN
     Indication: PRODUCT USED FOR UNKNOWN INDICATION
     Dosage: 6 TABLETS AT 5:30 P.M. ORAL
     Route: 048
     Dates: start: 20150121, end: 20150121

REACTIONS (3)
  - Poisoning deliberate [None]
  - Anxiety [None]
  - Intentional overdose [None]

NARRATIVE: CASE EVENT DATE: 20150121
